FAERS Safety Report 4292609-3 (Version None)
Quarter: 2004Q1

REPORT INFORMATION
  Report Type: 
  Country: None (occurrence: None)
  Receive Date: 20040126
  Receipt Date: 20031020
  Transmission Date: 20041129
  Serious: No
  Sender: FDA-Public Use
  Company Number: USA031050421

PATIENT
  Age: 60 Year
  Sex: Female

DRUGS (6)
  1. FORTEO [Suspect]
     Indication: OSTEOPOROSIS
     Dates: start: 20031001
  2. MIACALIN (CALCITONIN, SALMON) [Concomitant]
  3. TOPROL-XL [Concomitant]
  4. AMOXIL [Concomitant]
  5. BIAXIN [Concomitant]
  6. PRILOSEC [Concomitant]

REACTIONS (7)
  - DIFFICULTY IN WALKING [None]
  - DIZZINESS [None]
  - DYSPEPSIA [None]
  - HALLUCINATION [None]
  - NAUSEA [None]
  - RETCHING [None]
  - ULCER [None]
